FAERS Safety Report 5189873-5 (Version None)
Quarter: 2006Q4

REPORT INFORMATION
  Report Type: 
  Country: None (occurrence: None)
  Receive Date: 20061215
  Receipt Date: 20061206
  Transmission Date: 20070319
  Serious: Yes (Hospitalization)
  Sender: FDA-Public Use
  Company Number: 2006054255

PATIENT
  Age: 76 Year
  Sex: Female
  Weight: 67 kg

DRUGS (21)
  1. SOLU-MEDROL [Suspect]
     Dosage: (40 MG), INTRAMUSCULAR
     Route: 030
     Dates: start: 20051031, end: 20051106
  2. TRAMADOL HCL [Suspect]
     Dosage: (100 MG), ORAL
     Route: 048
     Dates: start: 20051031, end: 20051115
  3. PANTOPRAZOLE SODIUM [Suspect]
     Dosage: (20 MG), ORAL
     Route: 048
     Dates: start: 20050922, end: 20051115
  4. ALTIM (CORTIVAZOL) [Suspect]
     Dosage: INTRA-ARTERIAL
     Route: 013
     Dates: start: 20050930, end: 20051101
  5. TETRAZEPAM (TETRAZEPAM) [Suspect]
     Dosage: (50 MG), ORAL
     Route: 048
     Dates: start: 20051031, end: 20051115
  6. COAPROVEL (HYDROCHLORTHIAZIDE, IRBESARTAN) [Suspect]
     Dosage: (1 IN 1 D), ORAL
     Route: 048
     Dates: start: 20040615, end: 20051214
  7. CORTIVAZOL (CORTIVAZOL) [Suspect]
  8. VENLAFAXINE HCL [Concomitant]
  9. ANETHOLE TRITHIONE (ANETHOLE TRITHIONE) [Concomitant]
  10. SELEGILINE HYDROCHLORIDE (SELEGILINE HYDROCHLORIDE) [Concomitant]
  11. CLONAZEPAM [Concomitant]
  12. FUROSEMIDE [Concomitant]
  13. DILTIAZEM HYDROCHLORIDE [Concomitant]
  14. MACROGOL (MACROGOL) [Concomitant]
  15. DIALGIREX (DEXTROPROPOXYPHENE HYDROCHLORIDE, PARACETAMOL) [Concomitant]
  16. ACETAMINOPHEN [Concomitant]
  17. CALCITONIN, SALMON (CALCITONIN, SALMON) [Concomitant]
  18. DOMPERIDONE (DOMPERIDONE) [Concomitant]
  19. LAMALINE (FRANCE) (CAFFEINE, OPIUM TINCTURE, PARACETAMOL) [Concomitant]
  20. ALL OTHER THERAPEUTIC PRODUCTS (ALL OTHER THERAPEUTIC PRODUCTS) [Concomitant]
  21. HEXABRIX [Concomitant]

REACTIONS (4)
  - BLOOD CREATININE INCREASED [None]
  - NORMOCHROMIC NORMOCYTIC ANAEMIA [None]
  - SYSTEMIC LUPUS ERYTHEMATOSUS [None]
  - TOXIC SKIN ERUPTION [None]
